FAERS Safety Report 7353406-5 (Version None)
Quarter: 2011Q1

REPORT INFORMATION
  Report Type: 
  Country: None (occurrence: None)
  Receive Date: 20110304
  Receipt Date: 20110217
  Transmission Date: 20110831
  Serious: Yes (Disabling, Other)
  Sender: FDA-Public Use
  Company Number: 20110142

PATIENT
  Age: 14 Year
  Sex: Male

DRUGS (1)
  1. PHENYTOIN SODIUM [Suspect]

REACTIONS (3)
  - VISUAL ACUITY REDUCED [None]
  - EYE INFLAMMATION [None]
  - STEVENS-JOHNSON SYNDROME [None]
